FAERS Safety Report 9282490 (Version 1)
Quarter: 2013Q2

REPORT INFORMATION
  Report Type: Spontaneous
  Country: US (occurrence: US)
  Receive Date: 20130510
  Receipt Date: 20130510
  Transmission Date: 20140414
  Serious: Yes (Other)
  Sender: FDA-Public Use
  Company Number: US-PFIZER INC-2013143901

PATIENT
  Age: 60 Year
  Sex: Male
  Weight: 78 kg

DRUGS (5)
  1. DILANTIN [Suspect]
     Indication: CONVULSION
     Dosage: (200MG AT NIGHT AND 100MG IN THE MORNING ), 2X/DAY
     Dates: start: 2007
  2. OXYCODONE [Concomitant]
     Indication: INTERVERTEBRAL DISC PROTRUSION
     Dosage: 15 MG, EVERY 6 HOURS
  3. AMBIEN [Concomitant]
     Indication: SLEEP DISORDER
     Dosage: 10MG DAILY
  4. DEXILANT [Concomitant]
     Indication: ABDOMINAL PAIN UPPER
     Dosage: 60MG DAILY
  5. CYMBALTA [Concomitant]
     Indication: NEURALGIA
     Dosage: 60MG DAILY

REACTIONS (2)
  - Fall [Unknown]
  - Back injury [Unknown]
